FAERS Safety Report 9748902 (Version 3)
Quarter: 2014Q1

REPORT INFORMATION
  Report Type: Spontaneous
  Country: DE (occurrence: None)
  Receive Date: 20131209
  Receipt Date: 20140124
  Transmission Date: 20141002
  Serious: Yes (Hospitalization)
  Sender: FDA-Public Use
  Company Number: 2013MPI00786

PATIENT
  Age: 39 Year
  Sex: Female

DRUGS (9)
  1. BRENTUXIMAB VEDOTIN [Suspect]
     Indication: HODGKIN^S DISEASE
     Route: 042
     Dates: start: 20131108, end: 20131108
  2. ETOPOSIDE (ETOPOSIDE) [Suspect]
     Indication: HODGKIN^S DISEASE
     Route: 042
     Dates: start: 20131109, end: 20131112
  3. CYCLOPHOSPHAMIDE (CYCLOPHOSPHAMIDE) [Suspect]
     Indication: HODGKIN^S DISEASE
     Route: 042
     Dates: start: 20131109, end: 20131109
  4. DOXORUBICIN [Suspect]
     Indication: HODGKIN^S DISEASE
     Route: 042
     Dates: start: 20131109, end: 20131109
  5. PROCARBAZINE (PROCARBAZINE) [Suspect]
     Indication: HODGKIN^S DISEASE
     Dates: start: 20131109, end: 20131115
  6. PREDNISONE (PREDNISONE) [Suspect]
     Indication: HODGKIN^S DISEASE
     Dates: start: 20131109, end: 20131121
  7. CIPROFLOXACIN [Concomitant]
  8. PANTOZOL [Concomitant]
  9. ACIC [Concomitant]

REACTIONS (2)
  - Bone marrow failure [None]
  - Sepsis [None]
